FAERS Safety Report 9386952 (Version 3)
Quarter: 2013Q3

REPORT INFORMATION
  Report Type: Report from Study
  Country: CA (occurrence: CA)
  Receive Date: 20130708
  Receipt Date: 20130925
  Transmission Date: 20140515
  Serious: Yes (Other)
  Sender: FDA-Public Use
  Company Number: CA-JNJFOC-20130619585

PATIENT
  Age: 16 Year
  Sex: Female
  Weight: 36.29 kg

DRUGS (5)
  1. REMICADE [Suspect]
     Indication: CROHN^S DISEASE
     Route: 042
     Dates: start: 20130213, end: 201302
  2. REMICADE [Suspect]
     Indication: CROHN^S DISEASE
     Route: 042
     Dates: start: 201305
  3. REMICADE [Suspect]
     Indication: CROHN^S DISEASE
     Route: 042
     Dates: start: 2010
  4. IRON INFUSION [Concomitant]
     Dosage: FOR 3 WEEKS
     Route: 065
  5. BENADRYL [Concomitant]
     Indication: PREMEDICATION
     Route: 065

REACTIONS (6)
  - Fistula [Unknown]
  - Irritable bowel syndrome [Unknown]
  - Ileal stenosis [Unknown]
  - Dyspnoea [Recovering/Resolving]
  - Infusion related reaction [Recovering/Resolving]
  - Drug hypersensitivity [Recovering/Resolving]
